FAERS Safety Report 9787206 (Version 1)
Quarter: 2013Q4

REPORT INFORMATION
  Report Type: Spontaneous
  Country: US (occurrence: US)
  Receive Date: 20131229
  Receipt Date: 20131229
  Transmission Date: 20140711
  Serious: No
  Sender: FDA-Public Use
  Company Number: US-009507513-1312USA010892

PATIENT
  Age: 29 Year
  Sex: Female

DRUGS (9)
  1. PEGINTRON [Suspect]
     Indication: HEPATITIS C
     Dosage: REDIPEN 0.5CC ONCE A WEEK
     Route: 058
     Dates: start: 20131122
  2. REBETOL [Suspect]
     Indication: HEPATITIS C
     Dosage: 600 MG, QAM
     Route: 048
     Dates: start: 20131122
  3. REBETOL [Suspect]
     Dosage: 400 MG, QPM
     Route: 048
     Dates: start: 20131122
  4. VICTRELIS [Suspect]
     Indication: HEPATITIS C
     Dosage: 800 MG, Q8H
     Route: 048
     Dates: start: 20131220
  5. SYNTHROID [Concomitant]
     Dosage: 0.375 MG, QD
  6. ZOLOFT [Concomitant]
     Dosage: 100 MG, QD
  7. AMITRIPTYLINE HYDROCHLORIDE [Concomitant]
     Dosage: 50 MG, HS
  8. NEURONTIN [Concomitant]
     Dosage: 300 MG, TID
  9. MOBIC [Concomitant]
     Dosage: 7.5 MG, BID

REACTIONS (10)
  - Tongue discolouration [Unknown]
  - Pyrexia [Unknown]
  - Rhinorrhoea [Unknown]
  - Tongue haemorrhage [Unknown]
  - Feeling abnormal [Unknown]
  - Mobility decreased [Unknown]
  - Intervertebral disc degeneration [Unknown]
  - Arthritis [Unknown]
  - Nausea [Unknown]
  - Oropharyngeal pain [Unknown]
